FAERS Safety Report 13349493 (Version 1)
Quarter: 2017Q1

REPORT INFORMATION
  Report Type: Spontaneous
  Country: US (occurrence: US)
  Receive Date: 20170320
  Receipt Date: 20170320
  Transmission Date: 20170428
  Serious: No
  Sender: FDA-Public Use
  Company Number: US-DEPOMED, INC.-US-2016DEP009429

PATIENT

DRUGS (11)
  1. AMBIEN [Concomitant]
     Active Substance: ZOLPIDEM TARTRATE
     Indication: SLEEP DISORDER
     Dosage: 10 MG, UNK, TAKEN FOR A VERY LONG TIME, SOMETIMES TAKES HALF TABLET
     Route: 048
  2. NORCO [Concomitant]
     Active Substance: ACETAMINOPHEN\HYDROCODONE BITARTRATE
     Indication: PAIN
     Dosage: 10 MG, PRN, TAKEN FOR A FEW MONTHS
     Route: 048
  3. ENJUVIA [Concomitant]
     Active Substance: ESTROGENS, CONJUGATED SYNTHETIC B
     Indication: OESTROGEN DEFICIENCY
     Dosage: 0.3 MG, QD, TAKEN FOR 5 YEARS
     Route: 048
  4. CYMBALTA [Concomitant]
     Active Substance: DULOXETINE HYDROCHLORIDE
     Indication: PAIN
     Dosage: 60 MG, QD, TAKEN FOR 3-5 YEARS
     Route: 048
  5. GRALISE [Suspect]
     Active Substance: GABAPENTIN
     Indication: STENOSIS
     Dosage: 900 MG, QD
     Route: 048
     Dates: start: 20160409, end: 20160413
  6. GRALISE [Suspect]
     Active Substance: GABAPENTIN
     Indication: PAIN
     Dosage: 300 MG, QD
     Route: 048
     Dates: start: 20160407, end: 20160408
  7. AMLODIPINE [Concomitant]
     Active Substance: AMLODIPINE BESYLATE
     Indication: HYPERTENSION
     Dosage: 10 MG, QD, TAKING FOR SEVERAL YEARS
     Route: 048
  8. ROBAXIN [Concomitant]
     Active Substance: METHOCARBAMOL
     Indication: MUSCLE RELAXANT THERAPY
     Dosage: 500 MG, PRN
     Route: 048
  9. GRALISE [Suspect]
     Active Substance: GABAPENTIN
     Indication: ARTHRALGIA
     Dosage: 1200 MG, QD
     Route: 048
     Dates: start: 20160413, end: 20160417
  10. GRALISE [Suspect]
     Active Substance: GABAPENTIN
     Indication: FIBROMYALGIA
     Dosage: 600 MG, QD
     Route: 048
     Dates: start: 20160408, end: 20160409
  11. GRALISE [Suspect]
     Active Substance: GABAPENTIN
     Dosage: 1500 MG, QD
     Route: 048
     Dates: start: 20160417

REACTIONS (2)
  - Headache [Not Recovered/Not Resolved]
  - Weight increased [Not Recovered/Not Resolved]

NARRATIVE: CASE EVENT DATE: 20160413
